FAERS Safety Report 5900239-X (Version None)
Quarter: 2008Q3

REPORT INFORMATION
  Report Type: 
  Country: None (occurrence: None)
  Receive Date: 20080926
  Receipt Date: 20080916
  Transmission Date: 20090109
  Serious: Yes (Other)
  Sender: FDA-Public Use
  Company Number: CO-JNJFOC-20080903846

PATIENT
  Sex: Male

DRUGS (3)
  1. TOPAMAC [Suspect]
  2. TOPAMAC [Suspect]
     Indication: EPILEPSY
  3. VALPORIC ACID [Concomitant]
     Indication: EPILEPSY

REACTIONS (1)
  - STATUS EPILEPTICUS [None]
